FAERS Safety Report 9097749 (Version 2)
Quarter: 2013Q4

REPORT INFORMATION
  Report Type: Spontaneous
  Country: US (occurrence: US)
  Receive Date: 20130212
  Receipt Date: 20131227
  Transmission Date: 20140711
  Serious: Yes (Hospitalization)
  Sender: FDA-Public Use
  Company Number: US-BAYER-2013-018292

PATIENT
  Age: 51 Year
  Sex: Female
  Weight: 68.03 kg

DRUGS (16)
  1. YAZ [Suspect]
     Dosage: UNK
     Dates: start: 200711, end: 20100311
  2. CLONAZEPAM [Concomitant]
     Indication: MYOCLONIC EPILEPSY
     Dosage: 4 MG, BID
     Dates: start: 2002, end: 2012
  3. VERAPAMIL [Concomitant]
     Dosage: 240 MG, DAILY
  4. RELPAX [Concomitant]
     Indication: MIGRAINE
     Dosage: 40 MG, PRN
  5. VENTOLIN HFA [Concomitant]
     Dosage: 90 MCG
  6. EFFEXOR XR [Concomitant]
     Dosage: 75 MG, UNK
  7. A/H1N1 INFLUENZA PANDEMIC VACCINE [Concomitant]
  8. SINGULAIR [Concomitant]
     Dosage: 10 MG, DAILY
  9. MIRTAZAPINE [Concomitant]
     Dosage: 15 MG, UNK
  10. GABAPENTIN [Concomitant]
     Dosage: 1200, TID
  11. ADVAIR [Concomitant]
     Dosage: 250/50 MCG, 1 PUFF TWICE A DAY
  12. ALBUTEROL [Concomitant]
     Dosage: 2 PUFF(S), EVERY 4 HOURS AS NEEDED
  13. CELEXA [Concomitant]
     Dosage: 20 MG, DAILY
  14. SUMATRIPTAN [Concomitant]
     Indication: MIGRAINE
     Dosage: 20 MG, DAILY
  15. MUCINEX [Concomitant]
  16. OXYCODONE [Concomitant]

REACTIONS (18)
  - Pulmonary embolism [Recovered/Resolved]
  - Deep vein thrombosis [None]
  - Injury [Recovered/Resolved]
  - Amnesia [None]
  - Balance disorder [None]
  - Myoclonus [None]
  - Dyspnoea [Recovered/Resolved]
  - Coordination abnormal [None]
  - Chest pain [Recovered/Resolved]
  - Neck pain [Recovered/Resolved]
  - Headache [None]
  - Pain in extremity [None]
  - Painful respiration [Recovered/Resolved]
  - Fall [None]
  - Coordination abnormal [None]
  - Hypersomnia [None]
  - Memory impairment [None]
  - Decreased activity [None]
